FAERS Safety Report 6779230-X (Version None)
Quarter: 2010Q2

REPORT INFORMATION
  Report Type: 
  Country: None (occurrence: None)
  Receive Date: 20100618
  Receipt Date: 20100426
  Transmission Date: 20101027
  Serious: No
  Sender: FDA-Public Use
  Company Number: A0856743A

PATIENT
  Age: 75 Year
  Sex: Female

DRUGS (2)
  1. PROMACTA [Suspect]
     Dosage: 1TAB PER DAY
     Route: 048
     Dates: start: 20100101
  2. BETA BLOCKER [Concomitant]

REACTIONS (1)
  - PLATELET COUNT DECREASED [None]
